FAERS Safety Report 10211094 (Version 1)
Quarter: 2014Q2

REPORT INFORMATION
  Report Type: Spontaneous
  Country: US (occurrence: None)
  Receive Date: 20140530
  Receipt Date: 20140530
  Transmission Date: 20141212
  Serious: Yes (Disabling)
  Sender: FDA-Public Use
  Company Number: None

PATIENT
  Age: 48 Year
  Sex: Female
  Weight: 59.42 kg

DRUGS (8)
  1. SEPTRA [Suspect]
     Indication: STAPHYLOCOCCAL INFECTION
     Route: 048
     Dates: start: 20140508
  2. SEPTRA [Suspect]
     Indication: ABSCESS
     Route: 048
     Dates: start: 20140508
  3. GABAPENTIN [Concomitant]
  4. LEVOXYL [Concomitant]
  5. CLARITIN [Concomitant]
  6. MULTIVITAMIN [Concomitant]
  7. CALCIUM [Concomitant]
  8. ACIDOPHILUS [Concomitant]

REACTIONS (14)
  - Skin reaction [None]
  - Genital ulceration [None]
  - Blister [None]
  - Conjunctivitis allergic [None]
  - Pain [None]
  - Fatigue [None]
  - Depression [None]
  - Hunger [None]
  - Ill-defined disorder [None]
  - Headache [None]
  - Chills [None]
  - Dysphagia [None]
  - Pollakiuria [None]
  - Vulvovaginal discomfort [None]
